FAERS Safety Report 6698682-7 (Version None)
Quarter: 2010Q2

REPORT INFORMATION
  Report Type: 
  Country: None (occurrence: None)
  Receive Date: 20100427
  Receipt Date: 20091116
  Transmission Date: 20101027
  Serious: No
  Sender: FDA-Public Use
  Company Number: US-ASTRAZENECA-2009SE26642

PATIENT
  Sex: Male

DRUGS (1)
  1. ZOMIG [Suspect]

REACTIONS (1)
  - NERVOUS SYSTEM DISORDER [None]
